FAERS Safety Report 7788302-2 (Version None)
Quarter: 2011Q3

REPORT INFORMATION
  Report Type: 
  Country: None (occurrence: None)
  Receive Date: 20110929
  Receipt Date: 20110929
  Transmission Date: 20111222
  Serious: Yes (Hospitalization)
  Sender: FDA-Public Use
  Company Number: None

PATIENT
  Age: 9 Year
  Sex: Male
  Weight: 49.8957 kg

DRUGS (6)
  1. SYNTHROID [Concomitant]
  2. SINGULAIR [Concomitant]
  3. LISTERINE AGENT COOL BLUE BUBBLE BLAST (ORAL CARE PRODUCTS) LIQUID [Suspect]
     Indication: DENTAL DISORDER PROPHYLAXIS
     Dosage: 10 ML, 1 IN 1 DAY, ORAL
     Route: 048
     Dates: start: 20060901, end: 20061102
  4. ADVAIR HFA [Concomitant]
  5. ALL OTHER THERAPEUTICS [Concomitant]
  6. CLARITIN [Concomitant]

REACTIONS (4)
  - LUNG INFECTION [None]
  - SWELLING FACE [None]
  - HYPERSENSITIVITY [None]
  - ERYTHEMA [None]
